FAERS Safety Report 18107614 (Version 1)
Quarter: 2020Q3

REPORT INFORMATION
  Report Type: Spontaneous
  Country: US (occurrence: US)
  Receive Date: 20200804
  Receipt Date: 20200804
  Transmission Date: 20201103
  Serious: Yes (Hospitalization)
  Sender: FDA-Public Use
  Company Number: US-PFIZER INC-2020290942

PATIENT
  Age: 71 Year
  Sex: Female
  Weight: 61.69 kg

DRUGS (1)
  1. TIKOSYN [Suspect]
     Active Substance: DOFETILIDE
     Indication: SUPRAVENTRICULAR TACHYCARDIA
     Dosage: 500 MG, 2X/DAY (500MG CAPSULE BY MOUTH TWICE A DAY)
     Route: 048
     Dates: start: 20200714, end: 20200717

REACTIONS (12)
  - Pollakiuria [Not Recovered/Not Resolved]
  - Urinary tract infection [Unknown]
  - Malaise [Unknown]
  - Headache [Recovered/Resolved]
  - Sleep disorder [Unknown]
  - Product use in unapproved indication [Unknown]
  - Thirst [Not Recovered/Not Resolved]
  - Drug effective for unapproved indication [Unknown]
  - White blood cell count abnormal [Unknown]
  - Pain [Unknown]
  - Off label use [Unknown]
  - Fatigue [Unknown]

NARRATIVE: CASE EVENT DATE: 20200715
